FAERS Safety Report 6229446-6 (Version None)
Quarter: 2009Q2

REPORT INFORMATION
  Report Type: 
  Country: None (occurrence: None)
  Receive Date: 20090615
  Receipt Date: 20090601
  Transmission Date: 20091009
  Serious: Yes (Hospitalization)
  Sender: FDA-Public Use
  Company Number: A0731247A

PATIENT
  Sex: Female

DRUGS (1)
  1. AVANDIA [Suspect]
     Route: 048

REACTIONS (3)
  - ATRIAL FIBRILLATION [None]
  - CARDIAC FAILURE CONGESTIVE [None]
  - HYPERTENSION [None]
